FAERS Safety Report 4312072-3 (Version None)
Quarter: 2004Q1

REPORT INFORMATION
  Report Type: 
  Country: None (occurrence: None)
  Receive Date: 20040304
  Receipt Date: 20040304
  Transmission Date: 20041129
  Serious: Yes (Other)
  Sender: FDA-Public Use
  Company Number: None

PATIENT
  Age: 31 Year
  Sex: Female
  Weight: 51.4833 kg

DRUGS (1)
  1. DEPO-PROVERA [Suspect]
     Indication: CONTRACEPTION
     Dosage: 150MG/CC  Q 12 WEEKS INTRAMUSCULAR
     Route: 030
     Dates: start: 20040302, end: 20040525

REACTIONS (2)
  - PARAESTHESIA [None]
  - URTICARIA [None]
